FAERS Safety Report 6335602-9 (Version None)
Quarter: 2009Q3

REPORT INFORMATION
  Report Type: 
  Country: None (occurrence: None)
  Receive Date: 20090831
  Receipt Date: 20090827
  Transmission Date: 20100115
  Serious: Yes (Other)
  Sender: FDA-Public Use
  Company Number: US-GENENTECH-288954

PATIENT
  Sex: Female
  Weight: 113.38 kg

DRUGS (9)
  1. XOLAIR [Suspect]
     Indication: ASTHMA
     Dosage: 375 MG, Q2W
     Route: 030
     Dates: start: 20090305
  2. SINGULAIR [Concomitant]
     Indication: ASTHMA
     Dosage: 10 MG, QD
     Route: 048
     Dates: start: 20040527
  3. SINGULAIR [Concomitant]
     Indication: RHINITIS ALLERGIC
  4. ALLEGRA [Concomitant]
     Indication: RHINITIS ALLERGIC
     Dosage: 180 MG, QDX2
     Route: 048
     Dates: start: 20081210
  5. SYMBICORT [Concomitant]
     Indication: ASTHMA
     Dosage: 2 PUFF, BID
     Route: 055
     Dates: start: 20090122
  6. GUAIFENESIN [Concomitant]
     Indication: POSTNASAL DRIP
     Dosage: 400 MG, BID
     Route: 048
     Dates: start: 20090122
  7. PULMICORT RESPULES [Concomitant]
     Indication: ASTHMA
     Dosage: 0.5 UNK, PRN
     Route: 055
     Dates: start: 20090122
  8. AMITRIPTYLINE [Concomitant]
     Indication: MIGRAINE
     Dosage: UNK
     Route: 048
     Dates: start: 20090210
  9. ALBUTEROL [Concomitant]
     Indication: ASTHMA
     Dosage: 2 PUFF, PRN
     Route: 055
     Dates: start: 20000620

REACTIONS (1)
  - BRONCHOSPASM [None]
